FAERS Safety Report 10199647 (Version 2)
Quarter: 2014Q2

REPORT INFORMATION
  Report Type: Report from Study
  Country: US (occurrence: US)
  Receive Date: 20140527
  Receipt Date: 20140527
  Transmission Date: 20141212
  Serious: Yes (Death, Hospitalization)
  Sender: FDA-Public Use
  Company Number: US-ROCHE-1308954

PATIENT
  Age: 55 Year
  Sex: Female

DRUGS (3)
  1. CELLCEPT [Suspect]
     Indication: LUNG TRANSPLANT
     Route: 048
  2. VALCYTE [Suspect]
     Indication: LUNG TRANSPLANT
     Route: 048
  3. VALCYTE [Suspect]
     Indication: HEART TRANSPLANT
     Route: 048

REACTIONS (3)
  - Renal failure [Unknown]
  - White blood cell count decreased [Unknown]
  - Death [Fatal]
